FAERS Safety Report 18592459 (Version 4)
Quarter: 2021Q1

REPORT INFORMATION
  Report Type: Spontaneous
  Country: CN (occurrence: CN)
  Receive Date: 20201208
  Receipt Date: 20210102
  Transmission Date: 20210419
  Serious: Yes (Death, Other)
  Sender: FDA-Public Use
  Company Number: CN-ASTRAZENECA-2020SF63671

PATIENT
  Age: 22116 Day
  Sex: Male
  Weight: 64 kg

DRUGS (1)
  1. IMFINZI [Suspect]
     Active Substance: DURVALUMAB
     Indication: NON-SMALL CELL LUNG CANCER
     Dosage: 620.0MG ONCE/SINGLE ADMINISTRATION
     Route: 042
     Dates: start: 20200602, end: 20201119

REACTIONS (12)
  - Death [Fatal]
  - Eye inflammation [Unknown]
  - Ear disorder [Unknown]
  - Thermal burns of eye [Unknown]
  - Photophobia [Unknown]
  - Radiation injury [Unknown]
  - Mouth ulceration [Unknown]
  - Rash [Unknown]
  - Skin exfoliation [Unknown]
  - Skin reaction [Unknown]
  - Skin ulcer [Unknown]
  - Eye injury [Unknown]

NARRATIVE: CASE EVENT DATE: 20201119
